FAERS Safety Report 21978464 (Version 2)
Quarter: 2024Q2

REPORT INFORMATION
  Report Type: Spontaneous
  Country: FR (occurrence: FR)
  Receive Date: 20230210
  Receipt Date: 20240620
  Transmission Date: 20240716
  Serious: Yes (Death, Other)
  Sender: FDA-Public Use
  Company Number: FR-ABBVIE-4301062

PATIENT
  Age: 86 Year
  Sex: Male

DRUGS (8)
  1. VENETOCLAX [Suspect]
     Active Substance: VENETOCLAX
     Indication: Leukaemia
     Dosage: 100 MILLIGRAM
     Route: 048
     Dates: start: 20221025, end: 20221031
  2. VENETOCLAX [Suspect]
     Active Substance: VENETOCLAX
     Indication: Leukaemia
     Dosage: 400 MILLIGRAM
     Route: 048
     Dates: start: 20221108, end: 20221114
  3. VENETOCLAX [Suspect]
     Active Substance: VENETOCLAX
     Indication: Leukaemia
     Dosage: 20 MILLIGRAM
     Route: 048
     Dates: start: 20221011, end: 20221017
  4. VENETOCLAX [Suspect]
     Active Substance: VENETOCLAX
     Indication: Leukaemia
     Dosage: 200 MILLIGRAM
     Route: 048
     Dates: start: 20221101, end: 20221107
  5. VENETOCLAX [Suspect]
     Active Substance: VENETOCLAX
     Indication: Leukaemia
     Dosage: 50 MILLIGRAM
     Route: 048
     Dates: start: 20221018, end: 20221024
  6. VENETOCLAX [Suspect]
     Active Substance: VENETOCLAX
     Indication: Leukaemia
     Route: 048
  7. OBINUTUZUMAB [Concomitant]
     Active Substance: OBINUTUZUMAB
     Indication: Leukaemia recurrent
     Dosage: 900 MILLIGRAM; VIALS 1000 MG/40 ML
     Dates: start: 20221122
  8. OBINUTUZUMAB [Concomitant]
     Active Substance: OBINUTUZUMAB
     Indication: Leukaemia recurrent
     Dosage: 100 MILLIGRAM
     Dates: start: 20221121, end: 20221121

REACTIONS (7)
  - Acute respiratory distress syndrome [Fatal]
  - Rales [Recovering/Resolving]
  - Restlessness [Unknown]
  - Pyrexia [Recovered/Resolved]
  - Unevaluable event [Unknown]
  - Chills [Recovered/Resolved]
  - Hypertension [Recovering/Resolving]

NARRATIVE: CASE EVENT DATE: 20221121
